FAERS Safety Report 25395032 (Version 1)
Quarter: 2025Q2

REPORT INFORMATION
  Report Type: Spontaneous
  Country: CN (occurrence: CN)
  Receive Date: 20250604
  Receipt Date: 20250604
  Transmission Date: 20250716
  Serious: Yes (Hospitalization, Other)
  Sender: RANBAXY
  Company Number: CN-SUN PHARMACEUTICAL INDUSTRIES LTD-2025R1-509846

PATIENT
  Age: 15 Year
  Sex: Male

DRUGS (3)
  1. METHYLPREDNISOLONE [Suspect]
     Active Substance: METHYLPREDNISOLONE
     Indication: Stevens-Johnson syndrome
     Dosage: 2 MILLIGRAM/KILOGRAM, DAILY
     Route: 042
  2. METHYLPREDNISOLONE [Suspect]
     Active Substance: METHYLPREDNISOLONE
     Dosage: 3 MILLIGRAM/KILOGRAM, DAILY
     Route: 042
  3. ASCORBIC ACID [Suspect]
     Active Substance: ASCORBIC ACID
     Indication: Stevens-Johnson syndrome
     Route: 065

REACTIONS (5)
  - Condition aggravated [Unknown]
  - Blister [Unknown]
  - Eye pain [Unknown]
  - Photophobia [Unknown]
  - Genital lesion [Unknown]
